FAERS Safety Report 5164497-4 (Version None)
Quarter: 2006Q4

REPORT INFORMATION
  Report Type: 
  Country: None (occurrence: None)
  Receive Date: 20061205
  Receipt Date: 20061025
  Transmission Date: 20070319
  Serious: Yes (Hospitalization, Other)
  Sender: FDA-Public Use
  Company Number: DE-BRISTOL-MYERS SQUIBB COMPANY-13557053

PATIENT
  Age: 71 Year
  Sex: Male
  Weight: 80 kg

DRUGS (4)
  1. ETOPOPHOS [Suspect]
     Indication: BRONCHIAL CARCINOMA
     Dates: start: 20060921, end: 20060921
  2. CARBOPLATIN [Suspect]
     Indication: BRONCHIAL CARCINOMA
     Dates: start: 20060921, end: 20060921
  3. CORTISONE ACETATE [Concomitant]
  4. ATACAND [Concomitant]

REACTIONS (3)
  - ASTHENIA [None]
  - MUSCLE ATROPHY [None]
  - OSTEOARTHRITIS [None]
